FAERS Safety Report 7014663-8 (Version None)
Quarter: 2010Q3

REPORT INFORMATION
  Report Type: 
  Country: None (occurrence: None)
  Receive Date: 20100927
  Receipt Date: 20100917
  Transmission Date: 20110219
  Serious: Yes (Death)
  Sender: FDA-Public Use
  Company Number: JP-ROCHE-726979

PATIENT
  Sex: Female
  Weight: 50 kg

DRUGS (7)
  1. AVASTIN [Suspect]
     Indication: COLON CANCER METASTATIC
     Dosage: NOTE: DOSAGE IS UNCERTAIN.
     Route: 041
     Dates: start: 20100309
  2. ELPLAT [Concomitant]
     Route: 041
     Dates: start: 20100112
  3. LEUCOVORIN CALCIUM [Concomitant]
     Route: 041
     Dates: start: 20100112
  4. FLUOROURACIL [Concomitant]
     Route: 040
     Dates: start: 20100112
  5. FLUOROURACIL [Concomitant]
     Dosage: ROUTE: INTRAVENOUS DRIP
     Route: 040
     Dates: start: 20100112
  6. GRANISETRON HCL [Concomitant]
     Route: 041
     Dates: start: 20100112
  7. DECADRON [Concomitant]
     Route: 041
     Dates: start: 20100112

REACTIONS (1)
  - SUBARACHNOID HAEMORRHAGE [None]
